FAERS Safety Report 4903396-7 (Version None)
Quarter: 2006Q1

REPORT INFORMATION
  Report Type: 
  Country: None (occurrence: None)
  Receive Date: 20060203
  Receipt Date: 20060127
  Transmission Date: 20060701
  Serious: Yes (Death)
  Sender: FDA-Public Use
  Company Number: HQWYE489624JAN06

PATIENT
  Age: 67 Year
  Sex: Male

DRUGS (11)
  1. RAPAMUNE [Suspect]
     Indication: PROPHYLAXIS AGAINST TRANSPLANT REJECTION
     Dosage: SEE IMAGE
     Route: 048
     Dates: end: 20060120
  2. RAPAMUNE [Suspect]
     Indication: PROPHYLAXIS AGAINST TRANSPLANT REJECTION
     Dosage: SEE IMAGE
     Route: 048
     Dates: start: 20051226
  3. FLUOXETINE [Concomitant]
  4. CLARITHROMYCIN [Concomitant]
  5. ATORVASTATIN CALCIUM [Concomitant]
  6. PREDNISOLONE [Concomitant]
  7. SULFAMETHOXAZOLE + TRIMETHOPRIM [Concomitant]
  8. FUROSEMIDE [Concomitant]
  9. MYCOPHENOLATE MOFETIL (MYCOPHENOLATE MOFETIL) [Concomitant]
  10. ASPIRIN [Concomitant]
  11. CYCLIZINE (CYCLIZINE) [Concomitant]

REACTIONS (7)
  - CIRCULATORY COLLAPSE [None]
  - COMPLICATIONS OF TRANSPLANT SURGERY [None]
  - HAEMORRHAGE [None]
  - ILIAC VEIN OCCLUSION [None]
  - IMMUNOSUPPRESSION [None]
  - INFECTION [None]
  - OLIGURIA [None]
